FAERS Safety Report 19736410 (Version 1)
Quarter: 2021Q3

REPORT INFORMATION
  Report Type: Spontaneous
  Country: US (occurrence: US)
  Receive Date: 20210823
  Receipt Date: 20210823
  Transmission Date: 20211014
  Serious: No
  Sender: FDA-Public Use
  Company Number: NVSC2021US187451

PATIENT
  Sex: Female
  Weight: 54.42 kg

DRUGS (6)
  1. TREPROSTINIL. [Suspect]
     Active Substance: TREPROSTINIL
     Dosage: 0.015 ?G/KG
     Route: 041
     Dates: start: 2020
  2. TREPROSTINIL. [Suspect]
     Active Substance: TREPROSTINIL
     Dosage: UNK
     Route: 065
  3. ZOFRAN [Suspect]
     Active Substance: ONDANSETRON HYDROCHLORIDE
     Indication: NAUSEA
     Dosage: UNK
     Route: 065
     Dates: start: 2020
  4. TREPROSTINIL. [Suspect]
     Active Substance: TREPROSTINIL
     Dosage: 0.025 ?G/KG
     Route: 041
     Dates: start: 2020
  5. TREPROSTINIL. [Suspect]
     Active Substance: TREPROSTINIL
     Indication: PULMONARY ARTERIAL HYPERTENSION
     Dosage: 0.020 ?G/KG
     Route: 041
     Dates: start: 20200221
  6. TREPROSTINIL. [Suspect]
     Active Substance: TREPROSTINIL
     Dosage: 0.020 ?G/KG
     Route: 041
     Dates: start: 2020

REACTIONS (4)
  - Abdominal distension [Unknown]
  - Nausea [Unknown]
  - Constipation [Unknown]
  - Feeling abnormal [Unknown]
